FAERS Safety Report 7806645-0 (Version None)
Quarter: 2011Q4

REPORT INFORMATION
  Report Type: 
  Country: None (occurrence: None)
  Receive Date: 20111011
  Receipt Date: 20111001
  Transmission Date: 20120403
  Serious: Yes (Death, Other)
  Sender: FDA-Public Use
  Company Number: JP-JNJFOC-20111003654

PATIENT
  Age: 8 Decade
  Sex: Male

DRUGS (5)
  1. ISONIAZID [Suspect]
     Indication: PULMONARY TUBERCULOSIS
     Route: 065
  2. ETHAMBUTOL HYDROCHLORIDE [Suspect]
     Indication: PULMONARY TUBERCULOSIS
     Route: 065
  3. LEVOFLOXACIN [Suspect]
     Indication: PULMONARY TUBERCULOSIS
     Route: 065
  4. RIFADIN [Suspect]
     Indication: PULMONARY TUBERCULOSIS
     Route: 065
  5. CIPROFLOXACIN [Suspect]
     Indication: PULMONARY TUBERCULOSIS
     Route: 065

REACTIONS (3)
  - DEATH [None]
  - LIVER DISORDER [None]
  - HEPATIC FUNCTION ABNORMAL [None]
